FAERS Safety Report 5842215-1 (Version None)
Quarter: 2008Q3

REPORT INFORMATION
  Report Type: 
  Country: None (occurrence: None)
  Receive Date: 20080812
  Receipt Date: 20080807
  Transmission Date: 20090109
  Serious: Yes (Life-Threatening)
  Sender: FDA-Public Use
  Company Number: US-WYE-H05454708

PATIENT
  Sex: Male
  Weight: 179.33 kg

DRUGS (6)
  1. PRISTIQ [Suspect]
     Indication: MAJOR DEPRESSION
     Route: 048
     Dates: start: 20080722, end: 20080730
  2. ACIPHEX [Concomitant]
     Route: 048
     Dates: start: 20080201
  3. DOFETILIDE [Concomitant]
     Indication: ARRHYTHMIA
     Route: 048
     Dates: start: 20070301
  4. MICARDIS [Concomitant]
     Indication: BLOOD PRESSURE ABNORMAL
     Route: 048
     Dates: start: 20080401
  5. COUMADIN [Concomitant]
     Indication: ATRIAL FIBRILLATION
     Route: 048
     Dates: start: 20070101
  6. TOPROL-XL [Concomitant]
     Indication: HYPOTENSION
     Route: 048
     Dates: start: 20070301

REACTIONS (4)
  - BLOOD PRESSURE DECREASED [None]
  - DIARRHOEA [None]
  - DIZZINESS [None]
  - FATIGUE [None]
